FAERS Safety Report 5291631-8 (Version None)
Quarter: 2007Q2

REPORT INFORMATION
  Report Type: 
  Country: None (occurrence: None)
  Receive Date: 20070410
  Receipt Date: 20070326
  Transmission Date: 20071010
  Serious: Yes (Hospitalization, Disabling, Other)
  Sender: FDA-Public Use
  Company Number: GB-JNJFOC-20070306091

PATIENT
  Sex: Female
  Weight: 84 kg

DRUGS (12)
  1. INFLIXIMAB [Suspect]
     Indication: RHEUMATOID ARTHRITIS
     Route: 042
  2. ARTHROTEC [Concomitant]
  3. CALCICHEW [Concomitant]
     Dosage: 1 DT , 1/1 DAY
  4. DICLOFENAC SODIUM [Concomitant]
     Indication: RHEUMATOID ARTHRITIS
     Route: 048
  5. CO-PROXAMOL [Concomitant]
  6. FOLIC ACID [Concomitant]
     Indication: RHEUMATOID ARTHRITIS
     Route: 048
  7. FOSAMAX [Concomitant]
  8. LANSOPRAZOLE [Concomitant]
     Indication: RHEUMATOID ARTHRITIS
     Route: 048
  9. METHOTREXATE [Concomitant]
     Indication: RHEUMATOID ARTHRITIS
     Route: 048
  10. TEMAZEPAM [Concomitant]
     Dosage: 1 DF, 1/1 DAY
  11. TRAMADOL HCL [Concomitant]
  12. VEGANIN [Concomitant]

REACTIONS (1)
  - PERITONEAL TUBERCULOSIS [None]
